FAERS Safety Report 4405230-0 (Version None)
Quarter: 2004Q3

REPORT INFORMATION
  Report Type: 
  Country: None (occurrence: None)
  Receive Date: 20040722
  Receipt Date: 20040722
  Transmission Date: 20050211
  Serious: Yes (Life-Threatening, Hospitalization)
  Sender: FDA-Public Use
  Company Number: None

PATIENT
  Sex: Female
  Weight: 54.6 kg

DRUGS (4)
  1. CISPLATIN [Suspect]
     Indication: SMALL CELL LUNG CANCER EXTENSIVE STAGE
     Dosage: 50MG/M2 D1 Q 21 DA INTRAVENOUS
     Route: 042
     Dates: start: 20040526, end: 20040714
  2. ETOPOSIDE [Suspect]
     Indication: SMALL CELL LUNG CANCER EXTENSIVE STAGE
     Dosage: 50MG/M2 D1-3 Q21D INTRAVENOUS
     Route: 042
     Dates: start: 20040526, end: 20040716
  3. POTASSIUM [Concomitant]
  4. LEUKOCYTE DEPLETED PACKED RED BLOOD CELLS [Concomitant]

REACTIONS (7)
  - ASTHENIA [None]
  - BLOOD POTASSIUM DECREASED [None]
  - CONFUSIONAL STATE [None]
  - DIARRHOEA [None]
  - HAEMOGLOBIN DECREASED [None]
  - HEADACHE [None]
  - NAUSEA [None]
